FAERS Safety Report 4867824-8 (Version None)
Quarter: 2005Q4

REPORT INFORMATION
  Report Type: 
  Country: None (occurrence: None)
  Receive Date: 20051228
  Receipt Date: 20050426
  Transmission Date: 20060501
  Serious: Yes (Hospitalization)
  Sender: FDA-Public Use
  Company Number: US-MERCK-0504USA04809

PATIENT
  Age: 63 Year
  Sex: Female
  Weight: 75 kg

DRUGS (5)
  1. VIOXX [Suspect]
     Indication: ARTHRITIS
     Route: 048
     Dates: start: 19990707
  2. TYLENOL [Concomitant]
     Route: 048
  3. PRAVACHOL [Suspect]
     Route: 048
  4. DESYREL [Suspect]
     Route: 048
  5. DURAGESIC-100 [Suspect]
     Route: 061

REACTIONS (21)
  - ARTHROPATHY [None]
  - ASTHENIA [None]
  - BRONCHITIS [None]
  - DEPRESSION [None]
  - DIZZINESS [None]
  - DYSARTHRIA [None]
  - FIBROMYALGIA [None]
  - HALLUCINATION [None]
  - MYOCARDIAL INFARCTION [None]
  - NECK PAIN [None]
  - NORMOCHROMIC NORMOCYTIC ANAEMIA [None]
  - OEDEMA PERIPHERAL [None]
  - ORTHOSTATIC HYPOTENSION [None]
  - PANIC ATTACK [None]
  - RASH PRURITIC [None]
  - RESTLESS LEGS SYNDROME [None]
  - SINUS BRADYCARDIA [None]
  - SLEEP DISORDER [None]
  - SPINAL OSTEOARTHRITIS [None]
  - TEARFULNESS [None]
  - TRANSIENT ISCHAEMIC ATTACK [None]
